FAERS Safety Report 17170203 (Version 3)
Quarter: 2022Q1

REPORT INFORMATION
  Report Type: Report from Study
  Country: US (occurrence: US)
  Receive Date: 20191218
  Receipt Date: 20220105
  Transmission Date: 20220423
  Serious: Yes (Other)
  Sender: FDA-Public Use
  Company Number: US-PFIZER INC-2019531156

PATIENT
  Age: 20 Year
  Sex: Female
  Weight: 83.9 kg

DRUGS (5)
  1. VINCRISTINE SULFATE [Suspect]
     Active Substance: VINCRISTINE SULFATE
     Dosage: OVER 1 MINUTE OR INFUSION VIA MINIBAG ON DAY 1 OF CYCLES 5 AND 10, ON DAYS 1 AND 8 OF CYCLES 6 AND 7
     Route: 042
  2. TEMSIROLIMUS [Suspect]
     Active Substance: TEMSIROLIMUS
     Dosage: 15 MG/M2, OVER 30-60 MINUTES ON DAYS 1, 8, AND 15 OF CYCLES 8, 9 AND 10
     Route: 042
     Dates: end: 20191120
  3. CAMPTOSAR [Suspect]
     Active Substance: IRINOTECAN HYDROCHLORIDE
     Dosage: UNK UNK, CYCLIC (90 MINUTES ON DAYS 1-5 OF CYCLES 6, 7 AND 9)
     Route: 042
  4. DACTINOMYCIN [Suspect]
     Active Substance: DACTINOMYCIN
     Dosage: 0.05 MG/KG, CYCLIC (OVER 1-5 MINUTES ON DAY 1 OF CYCLES 5, 8 AND 10)
     Route: 042
  5. CYCLOPHOSPHAMIDE [Suspect]
     Active Substance: CYCLOPHOSPHAMIDE
     Dosage: UNK UNK, CYCLIC (OVER 60 MINUTES ON DAY 1 OF CYCLES 5, 8 AND 10)
     Route: 042

REACTIONS (1)
  - Stomatitis [Not Recovered/Not Resolved]

NARRATIVE: CASE EVENT DATE: 20191127
